FAERS Safety Report 18112751 (Version 1)
Quarter: 2020Q3

REPORT INFORMATION
  Report Type: Spontaneous
  Country: AU (occurrence: AU)
  Receive Date: 20200805
  Receipt Date: 20200805
  Transmission Date: 20201103
  Serious: Yes (Congenital Anomaly)
  Sender: FDA-Public Use
  Company Number: AU-BIOGEN-2020BI00905660

PATIENT

DRUGS (2)
  1. TYSABRI [Suspect]
     Active Substance: NATALIZUMAB
     Indication: MATERNAL EXPOSURE TIMING UNSPECIFIED
     Route: 064
     Dates: start: 2008
  2. TYSABRI [Suspect]
     Active Substance: NATALIZUMAB
     Route: 064
     Dates: start: 2015, end: 2017

REACTIONS (2)
  - Trisomy 21 [Recovered/Resolved]
  - Foetal exposure during pregnancy [Recovered/Resolved]
